FAERS Safety Report 6107863-2 (Version None)
Quarter: 2009Q1

REPORT INFORMATION
  Report Type: 
  Country: None (occurrence: None)
  Receive Date: 20090309
  Receipt Date: 20090303
  Transmission Date: 20090719
  Serious: Yes (Hospitalization)
  Sender: FDA-Public Use
  Company Number: ZA-AVENTIS-200912053GDDC

PATIENT
  Age: 11 Year
  Sex: Female

DRUGS (2)
  1. APIDRA [Suspect]
  2. INSULIN PUMP NOS [Suspect]

REACTIONS (2)
  - DIABETIC KETOACIDOSIS [None]
  - PRODUCT QUALITY ISSUE [None]
